FAERS Safety Report 14094851 (Version 2)
Quarter: 2017Q4

REPORT INFORMATION
  Report Type: Spontaneous
  Country: RU (occurrence: RU)
  Receive Date: 20171016
  Receipt Date: 20171027
  Transmission Date: 20180321
  Serious: Yes (Other)
  Sender: FDA-Public Use
  Company Number: RU-SA-2017SA182408

PATIENT
  Age: 75 Year
  Sex: Female
  Weight: 60 kg

DRUGS (4)
  1. SYMBICORT [Concomitant]
     Active Substance: BUDESONIDE\FORMOTEROL FUMARATE DIHYDRATE
     Indication: BRONCHITIS CHRONIC
     Dosage: ROUTE: INHALATION?DOSE/FREQ: 1 INHALATION 3 PER DAY
     Route: 055
     Dates: start: 2016
  2. LANTUS SOLOSTAR [Suspect]
     Active Substance: INSULIN GLARGINE
     Indication: TYPE 2 DIABETES MELLITUS
     Dosage: DOSE:16 UNIT(S)
     Route: 058
     Dates: start: 2013
  3. SOLOSTAR [Suspect]
     Active Substance: DEVICE
     Indication: TYPE 2 DIABETES MELLITUS
     Dates: start: 2013
  4. HUMALOG [Concomitant]
     Active Substance: INSULIN LISPRO
     Indication: TYPE 2 DIABETES MELLITUS
     Dosage: DOSE: 10 U (MORNING) + 10 U (NOON) + 12 U (EVENING) 3 TIMES PER DAY?START: MORE THAN 5 YEARS
     Route: 058

REACTIONS (9)
  - Gangrene [Not Recovered/Not Resolved]
  - Wound secretion [Recovering/Resolving]
  - Oedema [Recovering/Resolving]
  - Hyperglycaemia [Not Recovered/Not Resolved]
  - Wound [Unknown]
  - Diabetic foot [Unknown]
  - Infection [Recovering/Resolving]
  - Pain [Recovering/Resolving]
  - Impaired healing [Recovering/Resolving]

NARRATIVE: CASE EVENT DATE: 20170825
